FAERS Safety Report 5334781-X (Version None)
Quarter: 2007Q2

REPORT INFORMATION
  Report Type: 
  Country: None (occurrence: None)
  Receive Date: 20070525
  Receipt Date: 20070515
  Transmission Date: 20071010
  Serious: Yes (Other)
  Sender: FDA-Public Use
  Company Number: BR-ROCHE-498225

PATIENT
  Age: 33 Year
  Sex: Female

DRUGS (1)
  1. RIVOTRIL [Suspect]
     Indication: DRUG USE FOR UNKNOWN INDICATION
     Route: 048
     Dates: start: 20070515, end: 20070515

REACTIONS (6)
  - APHASIA [None]
  - DRUG ADMINISTRATION ERROR [None]
  - DRUG THERAPY [None]
  - EYE MOVEMENT DISORDER [None]
  - MOVEMENT DISORDER [None]
  - SOMNOLENCE [None]
